FAERS Safety Report 6374109-X (Version None)
Quarter: 2009Q3

REPORT INFORMATION
  Report Type: 
  Country: None (occurrence: None)
  Receive Date: 20090924
  Receipt Date: 20090614
  Transmission Date: 20100115
  Serious: No
  Sender: FDA-Public Use
  Company Number: US-ASTRAZENECA-2009UW15138

PATIENT
  Age: 40 Year
  Sex: Male
  Weight: 74.8 kg

DRUGS (2)
  1. SEROQUEL XR [Suspect]
     Indication: NIGHTMARE
     Route: 048
     Dates: start: 20090612
  2. METHADONE HCL [Concomitant]
     Indication: DRUG DEPENDENCE

REACTIONS (1)
  - CONFUSIONAL STATE [None]
